FAERS Safety Report 23245609 (Version 1)
Quarter: 2023Q4

REPORT INFORMATION
  Report Type: Spontaneous
  Country: DE (occurrence: DE)
  Receive Date: 20231130
  Receipt Date: 20231130
  Transmission Date: 20240110
  Serious: Yes (Hospitalization, Other)
  Sender: FDA-Public Use
  Company Number: None

PATIENT
  Age: 15 Year
  Sex: Female
  Weight: 55.6 kg

DRUGS (11)
  1. CLOZAPINE [Suspect]
     Active Substance: CLOZAPINE
     Indication: Schizophrenia
     Dosage: 1X DAILY IN THE MORNING
     Dates: start: 20230901, end: 20230902
  2. OLANZAPINE [Concomitant]
     Active Substance: OLANZAPINE
     Indication: Schizophrenia
     Dosage: 1X DAILY IN THE EVENING
     Dates: start: 20230829, end: 20230901
  3. OLANZAPINE [Concomitant]
     Active Substance: OLANZAPINE
     Indication: Schizophrenia
     Dosage: 1X DAILY IN THE EVENING
     Dates: start: 20230907, end: 20230912
  4. OLANZAPINE [Concomitant]
     Active Substance: OLANZAPINE
     Indication: Schizophrenia
     Dosage: 1X DAILY IN THE EVENING
     Dates: start: 20230902, end: 20230906
  5. CLOZAPINE [Suspect]
     Active Substance: CLOZAPINE
     Indication: Schizophrenia
     Dosage: 1X DAILY IN THE MORNING
     Dates: start: 20230905, end: 20230906
  6. CLOZAPINE [Suspect]
     Active Substance: CLOZAPINE
     Indication: Schizophrenia
     Dosage: 1X DAILY IN THE MORNING
     Dates: start: 20230829, end: 20230902
  7. CLOZAPINE [Suspect]
     Active Substance: CLOZAPINE
     Indication: Schizophrenia
     Dosage: 1X DAILY IN THE MORNING
     Dates: start: 20230909, end: 20230910
  8. CLOZAPINE [Suspect]
     Active Substance: CLOZAPINE
     Indication: Schizophrenia
     Dosage: 1X DAILY IN THE MORNING
     Dates: start: 20230911, end: 20230912
  9. CLOZAPINE [Suspect]
     Active Substance: CLOZAPINE
     Indication: Schizophrenia
     Dosage: 1X DAILY IN THE MORNING
     Dates: start: 20230830
  10. CLOZAPINE [Suspect]
     Active Substance: CLOZAPINE
     Indication: Schizophrenia
     Dosage: 1X DAILY IN THE MORNING
     Dates: start: 20230903, end: 20230904
  11. CLOZAPINE [Suspect]
     Active Substance: CLOZAPINE
     Indication: Schizophrenia
     Dosage: 1X DAILY IN THE MORNING
     Dates: start: 20230907, end: 20230908

REACTIONS (7)
  - C-reactive protein increased [Recovered/Resolved]
  - Somnolence [Recovered/Resolved]
  - Cardiovascular disorder [Recovered/Resolved]
  - Malaise [Recovered/Resolved]
  - Troponin increased [Recovered/Resolved]
  - Myocarditis [Recovered/Resolved]
  - Nausea [Recovered/Resolved]

NARRATIVE: CASE EVENT DATE: 20230912
